FAERS Safety Report 23689116 (Version 2)
Quarter: 2024Q2

REPORT INFORMATION
  Report Type: Report from Study
  Country: US (occurrence: US)
  Receive Date: 20240330
  Receipt Date: 20240403
  Transmission Date: 20240716
  Serious: Yes (Hospitalization)
  Sender: FDA-Public Use
  Company Number: US-ABBVIE-5696371

PATIENT
  Age: 74 Year
  Sex: Male
  Weight: 120.2 kg

DRUGS (1)
  1. SKYRIZI [Suspect]
     Active Substance: RISANKIZUMAB-RZAA
     Indication: Crohn^s disease
     Route: 058
     Dates: start: 20221116

REACTIONS (7)
  - Hallucination [Recovered/Resolved]
  - Road traffic accident [Not Recovered/Not Resolved]
  - Dyskinesia [Recovering/Resolving]
  - Back pain [Not Recovered/Not Resolved]
  - Osteomyelitis [Not Recovered/Not Resolved]
  - Myocardial necrosis marker increased [Not Recovered/Not Resolved]
  - Cellulitis [Recovering/Resolving]

NARRATIVE: CASE EVENT DATE: 20240312
